FAERS Safety Report 19050679 (Version 3)
Quarter: 2022Q2

REPORT INFORMATION
  Report Type: Report from Study
  Country: CA (occurrence: CA)
  Receive Date: 20210323
  Receipt Date: 20220629
  Transmission Date: 20220721
  Serious: No
  Sender: FDA-Public Use
  Company Number: CA-JNJFOC-20210335175

PATIENT
  Age: 77 Year
  Sex: Female

DRUGS (1)
  1. REMICADE [Suspect]
     Active Substance: INFLIXIMAB
     Indication: Rheumatoid arthritis
     Route: 042
     Dates: end: 20220624

REACTIONS (9)
  - Neoplasm skin [Unknown]
  - Throat irritation [Unknown]
  - Malaise [Unknown]
  - Scar [Unknown]
  - Suspected COVID-19 [Unknown]
  - Pain [Unknown]
  - Arthralgia [Unknown]
  - Pustule [Unknown]
  - Infection [Unknown]

NARRATIVE: CASE EVENT DATE: 20210216
